FAERS Safety Report 18470736 (Version 6)
Quarter: 2023Q4

REPORT INFORMATION
  Report Type: Other
  Country: FR (occurrence: None)
  Receive Date: 20201105
  Receipt Date: 20231227
  Transmission Date: 20240110
  Serious: Yes (Other)
  Sender: FDA-Public Use
  Company Number: FR-ROCHE-2678116

PATIENT
  Age: 47 Year
  Sex: Male
  Weight: 55.2 kg

DRUGS (4)
  1. ATEZOLIZUMAB [Suspect]
     Active Substance: ATEZOLIZUMAB
     Indication: Non-small cell lung cancer metastatic
     Dosage: SUBSEQUENT DOSE OF ATEZOLIZUMAB RECEIVED ON 20/JUN/2019, 11/JUL/2019, 01/AUG/2019, 21/AUG/2019, 12/S
     Route: 041
     Dates: start: 20190529
  2. VOLTARENE [Concomitant]
     Indication: Tendon pain
     Dates: start: 20191003, end: 20201009
  3. ACETAMINOPHEN [Concomitant]
     Active Substance: ACETAMINOPHEN
     Indication: Tendon pain
     Dates: start: 20191003, end: 20201009
  4. PANTOPRAZOLE [Concomitant]
     Active Substance: PANTOPRAZOLE
     Dates: start: 20200116, end: 20200122

REACTIONS (2)
  - Polyarthritis [Recovered/Resolved]
  - Bronchitis [Recovered/Resolved]

NARRATIVE: CASE EVENT DATE: 20191101
